FAERS Safety Report 8311665-6 (Version None)
Quarter: 2012Q1

REPORT INFORMATION
  Report Type: 
  Country: None (occurrence: None)
  Receive Date: 20120315
  Receipt Date: 20110124
  Transmission Date: 20120608
  Serious: Yes (Other)
  Sender: FDA-Public Use
  Company Number: PHHY2011US01470

PATIENT
  Age: 44 Year
  Sex: Female
  Weight: 115 kg

DRUGS (5)
  1. HYROCHLOROTHIAZIDE (HYDROCHLOROTHIAZIDE) [Concomitant]
  2. ELAVIL [Concomitant]
  3. GILENYA [Suspect]
     Indication: MULTIPLE SCLEROSIS
     Dosage: 0.5 MG, QD, ORAL
     Route: 048
     Dates: start: 20101215
  4. ALLEGRA [Concomitant]
  5. ULTRAM [Concomitant]

REACTIONS (6)
  - SINUSITIS [None]
  - NASAL CONGESTION [None]
  - BRONCHITIS [None]
  - EAR PAIN [None]
  - PYREXIA [None]
  - PRODUCTIVE COUGH [None]
